FAERS Safety Report 13986995 (Version 1)
Quarter: 2017Q3

REPORT INFORMATION
  Report Type: Spontaneous
  Country: US (occurrence: US)
  Receive Date: 20170919
  Receipt Date: 20170919
  Transmission Date: 20171128
  Serious: No
  Sender: FDA-Public Use
  Company Number: US-ALLERGAN-1733841US

PATIENT
  Sex: Female

DRUGS (1)
  1. LILETTA [Suspect]
     Active Substance: LEVONORGESTREL
     Indication: CONTRACEPTION
     Dosage: 52 MG SINGLE
     Route: 015
     Dates: start: 20170621

REACTIONS (4)
  - Device expulsion [Unknown]
  - Vaginal haemorrhage [Unknown]
  - Vaginal infection [Unknown]
  - Vaginal discharge [Unknown]
